FAERS Safety Report 10462651 (Version 1)
Quarter: 2014Q3

REPORT INFORMATION
  Report Type: Spontaneous
  Country: US (occurrence: US)
  Receive Date: 20140918
  Receipt Date: 20140918
  Transmission Date: 20150326
  Serious: Yes (Hospitalization, Other)
  Sender: FDA-Public Use
  Company Number: US-TEVA-508790USA

PATIENT
  Sex: Female

DRUGS (2)
  1. PROAIR HFA [Suspect]
     Active Substance: ALBUTEROL SULFATE
  2. ADVAIR HFA [Suspect]
     Active Substance: FLUTICASONE PROPIONATE\SALMETEROL XINAFOATE
     Indication: ASTHMA
     Dosage: 2 DOSAGE FORMS DAILY; 250/50MCG
     Route: 055
     Dates: start: 2004

REACTIONS (10)
  - Speech disorder [Unknown]
  - Loss of consciousness [Unknown]
  - Ovarian neoplasm [Unknown]
  - Dysphonia [Unknown]
  - Inappropriate schedule of drug administration [Unknown]
  - Circulatory collapse [Unknown]
  - Cough [Unknown]
  - Food poisoning [Unknown]
  - Chest discomfort [Unknown]
  - Drug dose omission [Unknown]

NARRATIVE: CASE EVENT DATE: 2004
